FAERS Safety Report 16884617 (Version 1)
Quarter: 2019Q4

REPORT INFORMATION
  Report Type: Spontaneous
  Country: ES (occurrence: ES)
  Receive Date: 20191004
  Receipt Date: 20191004
  Transmission Date: 20200122
  Serious: Yes (Hospitalization)
  Sender: FDA-Public Use
  Company Number: ES-MYLANLABS-2019M1091506

PATIENT
  Age: 35 Year
  Sex: Female

DRUGS (2)
  1. IBUPROFEN. [Suspect]
     Active Substance: IBUPROFEN
     Indication: PHARYNGITIS
     Dosage: UNK UNK, TOTAL
     Route: 048
     Dates: start: 20190325, end: 20190325
  2. AUGMENTINE                         /00756801/ [Suspect]
     Active Substance: AMOXICILLIN\CLAVULANATE POTASSIUM
     Indication: PHARYNGITIS
     Dosage: 1 DOSAGE FORM, TOTAL
     Route: 048
     Dates: start: 20190325, end: 20190325

REACTIONS (4)
  - Oedema peripheral [Recovered/Resolved]
  - Urticaria [Recovered/Resolved]
  - Erythema [Recovered/Resolved]
  - Anaphylactic reaction [Recovered/Resolved]

NARRATIVE: CASE EVENT DATE: 20190325
